FAERS Safety Report 5192676-9 (Version None)
Quarter: 2006Q4

REPORT INFORMATION
  Report Type: 
  Country: None (occurrence: None)
  Receive Date: 20061220
  Receipt Date: 20061214
  Transmission Date: 20070319
  Serious: Yes (Hospitalization)
  Sender: FDA-Public Use
  Company Number: 2005121180

PATIENT
  Age: 44 Year
  Sex: Female

DRUGS (3)
  1. NEURONTIN [Suspect]
     Indication: BACK PAIN
     Dosage: ORAL
     Route: 048
     Dates: start: 19991230
  2. NEURONTIN [Suspect]
     Indication: CONVULSION
     Dosage: ORAL
     Route: 048
     Dates: start: 19991230
  3. NEURONTIN [Suspect]
     Indication: NERVE INJURY
     Dosage: ORAL
     Route: 048
     Dates: start: 19991230

REACTIONS (4)
  - DRUG INEFFECTIVE [None]
  - INTENTIONAL SELF-INJURY [None]
  - LACERATION [None]
  - SUICIDE ATTEMPT [None]
